FAERS Safety Report 5876520-X (Version None)
Quarter: 2008Q3

REPORT INFORMATION
  Report Type: 
  Country: None (occurrence: None)
  Receive Date: 20080910
  Receipt Date: 20080905
  Transmission Date: 20090109
  Serious: Yes (Hospitalization)
  Sender: FDA-Public Use
  Company Number: B0536358A

PATIENT
  Age: 59 Year
  Sex: Male

DRUGS (2)
  1. AZATHIOPRINE [Suspect]
     Indication: HEART TRANSPLANT
     Route: 048
     Dates: start: 20000220
  2. VALACYCLOVIR HCL [Suspect]

REACTIONS (10)
  - ABDOMINAL DISCOMFORT [None]
  - ANAEMIA [None]
  - BLOOD GLUCOSE FLUCTUATION [None]
  - CONSTIPATION [None]
  - CYTOMEGALOVIRUS INFECTION [None]
  - DEHYDRATION [None]
  - FATIGUE [None]
  - LEUKOPENIA [None]
  - NAUSEA [None]
  - TYPE 1 DIABETES MELLITUS [None]
